FAERS Safety Report 5380402-X (Version None)
Quarter: 2007Q3

REPORT INFORMATION
  Report Type: 
  Country: None (occurrence: None)
  Receive Date: 20070706
  Receipt Date: 20070524
  Transmission Date: 20080115
  Serious: No
  Sender: FDA-Public Use
  Company Number: A0652851A

PATIENT
  Age: 48 Year
  Sex: Female

DRUGS (4)
  1. TYKERB [Suspect]
     Indication: BREAST CANCER
     Dosage: 5TAB PER DAY
     Route: 048
     Dates: start: 20070521
  2. WELLBUTRIN [Concomitant]
  3. FLURAZEPAM [Concomitant]
  4. ALPRAZOLAM [Concomitant]

REACTIONS (2)
  - DIARRHOEA [None]
  - NAUSEA [None]
